FAERS Safety Report 9956683 (Version 1)
Quarter: 2014Q1

REPORT INFORMATION
  Report Type: Report from Study
  Country: US (occurrence: US)
  Receive Date: 20140304
  Receipt Date: 20140304
  Transmission Date: 20141002
  Serious: No
  Sender: FDA-Public Use
  Company Number: US-ABBVIE-13P-163-1092934-00

PATIENT
  Age: 57 Year
  Sex: Female

DRUGS (4)
  1. HUMIRA [Suspect]
     Indication: CROHN^S DISEASE
     Dates: start: 20121127
  2. COUMADIN [Concomitant]
     Indication: AORTIC VALVE DISEASE
  3. LEVOXYL [Concomitant]
     Indication: THYROID DISORDER
  4. METOPROLOL [Concomitant]
     Indication: TACHYCARDIA

REACTIONS (2)
  - Respiratory tract infection [Recovering/Resolving]
  - Respiratory tract infection [Recovering/Resolving]
